FAERS Safety Report 16463316 (Version 7)
Quarter: 2019Q4

REPORT INFORMATION
  Report Type: Spontaneous
  Country: US (occurrence: US)
  Receive Date: 20190621
  Receipt Date: 20191010
  Transmission Date: 20200122
  Serious: Yes (Other)
  Sender: FDA-Public Use
  Company Number: US-PFIZER INC-2016543841

PATIENT
  Age: 82 Year
  Sex: Female

DRUGS (2)
  1. LYRICA [Suspect]
     Active Substance: PREGABALIN
     Indication: PAIN
  2. LYRICA [Suspect]
     Active Substance: PREGABALIN
     Indication: NEURALGIA
     Dosage: 150 MG, 2X/DAY
     Route: 048

REACTIONS (7)
  - Malaise [Not Recovered/Not Resolved]
  - Pain [Unknown]
  - Chest injury [Unknown]
  - Dyspnoea [Unknown]
  - Hypoacusis [Unknown]
  - Fatigue [Unknown]
  - Gait disturbance [Unknown]
